FAERS Safety Report 9010038 (Version 5)
Quarter: 2014Q2

REPORT INFORMATION
  Report Type: Spontaneous
  Country: US (occurrence: US)
  Receive Date: 20130110
  Receipt Date: 20140407
  Transmission Date: 20141212
  Serious: Yes (Hospitalization, Other)
  Sender: FDA-Public Use
  Company Number: US-009507513-1301USA000667

PATIENT
  Sex: Female
  Weight: 57.14 kg

DRUGS (5)
  1. FOSAMAX [Suspect]
     Indication: OSTEOPOROSIS
     Dosage: 70 MG, QW
     Route: 048
     Dates: end: 200708
  2. FOSAMAX [Suspect]
     Dosage: 70 MG, QW
     Route: 048
     Dates: start: 2009, end: 201108
  3. FORTEO [Suspect]
     Indication: OSTEOPOROSIS
     Dosage: UNK
     Dates: start: 2007, end: 2009
  4. PREDNISONE [Concomitant]
     Indication: OSTEOARTHRITIS
  5. ALENDRONATE SODIUM [Suspect]
     Dosage: 70 MG, UNK

REACTIONS (23)
  - Femur fracture [Recovered/Resolved]
  - Intramedullary rod insertion [Unknown]
  - Femur fracture [Recovered/Resolved]
  - Intramedullary rod insertion [Unknown]
  - Femur fracture [Unknown]
  - Skin cancer [Unknown]
  - Surgery [Unknown]
  - Upper limb fracture [Unknown]
  - Stress fracture [Unknown]
  - Neuropathy peripheral [Unknown]
  - Pelvic abscess [Unknown]
  - Herpes zoster [Unknown]
  - Rhinoplasty [Unknown]
  - Tendon operation [Unknown]
  - Rib fracture [Unknown]
  - Osteopenia [Unknown]
  - Amenorrhoea [Unknown]
  - Urinary tract infection [Unknown]
  - Rib fracture [Unknown]
  - Foot fracture [Unknown]
  - Limb asymmetry [Unknown]
  - Back pain [Unknown]
  - Gastrooesophageal reflux disease [Unknown]
